FAERS Safety Report 7083556-2 (Version None)
Quarter: 2010Q4

REPORT INFORMATION
  Report Type: 
  Country: None (occurrence: None)
  Receive Date: 20101104
  Receipt Date: 20080923
  Transmission Date: 20110411
  Serious: Yes (Other)
  Sender: FDA-Public Use
  Company Number: AU-ROCHE-733491

PATIENT
  Age: 40 Year
  Sex: Male

DRUGS (4)
  1. AVASTIN [Suspect]
     Route: 042
  2. FOLINIC ACID [Suspect]
     Route: 065
  3. FLUOROURACIL [Suspect]
     Route: 065
  4. OXALIPLATIN [Suspect]
     Route: 065

REACTIONS (3)
  - HYPERSENSITIVITY [None]
  - MALIGNANT NEOPLASM PROGRESSION [None]
  - POST PROCEDURAL HAEMORRHAGE [None]
